FAERS Safety Report 17036247 (Version 1)
Quarter: 2019Q4

REPORT INFORMATION
  Report Type: Spontaneous
  Country: US (occurrence: US)
  Receive Date: 20191114
  Receipt Date: 20191114
  Transmission Date: 20200122
  Serious: Yes (Hospitalization, Disabling)
  Sender: FDA-Public Use
  Company Number: None

PATIENT
  Age: 26 Year
  Sex: Female
  Weight: 58.5 kg

DRUGS (6)
  1. EMGALITY [Suspect]
     Active Substance: GALCANEZUMAB-GNLM
     Indication: MIGRAINE
     Dosage: ?          QUANTITY:1 INJECTION(S);OTHER FREQUENCY:ONCE PER MONTH;?
     Route: 030
     Dates: start: 20191102, end: 20191102
  2. ALEVE [Concomitant]
     Active Substance: NAPROXEN SODIUM
  3. LAMOTRIGINE. [Concomitant]
     Active Substance: LAMOTRIGINE
  4. VIIBRYD [Concomitant]
     Active Substance: VILAZODONE HYDROCHLORIDE
  5. RIZATRIPTAN. [Concomitant]
     Active Substance: RIZATRIPTAN
  6. BOTOX [Concomitant]
     Active Substance: ONABOTULINUMTOXINA

REACTIONS (6)
  - Loss of personal independence in daily activities [None]
  - Impaired work ability [None]
  - Ovarian cyst ruptured [None]
  - Feeling abnormal [None]
  - Nephrolithiasis [None]
  - Impaired quality of life [None]

NARRATIVE: CASE EVENT DATE: 20191104
